FAERS Safety Report 25511621 (Version 1)
Quarter: 2025Q3

REPORT INFORMATION
  Report Type: Spontaneous
  Country: US (occurrence: US)
  Receive Date: 20250703
  Receipt Date: 20250703
  Transmission Date: 20251020
  Serious: No
  Sender: RADIUS PHARM
  Company Number: US-RADIUS HEALTH INC.-2024US007273

PATIENT
  Age: 66 Year
  Sex: Female

DRUGS (1)
  1. TYMLOS [Suspect]
     Active Substance: ABALOPARATIDE
     Indication: Senile osteoporosis
     Route: 058

REACTIONS (12)
  - Dizziness [Unknown]
  - Pain [Unknown]
  - COVID-19 [Not Recovered/Not Resolved]
  - Bone pain [Unknown]
  - Product dose omission in error [Unknown]
  - Back pain [Unknown]
  - Heart rate increased [Unknown]
  - Fatigue [Unknown]
  - Injection site reaction [Unknown]
  - Influenza [Unknown]
  - Product dose omission issue [Unknown]
  - Bronchitis [Unknown]

NARRATIVE: CASE EVENT DATE: 20240901
